FAERS Safety Report 5173733-X (Version None)
Quarter: 2006Q4

REPORT INFORMATION
  Report Type: 
  Country: None (occurrence: None)
  Receive Date: 20061208
  Receipt Date: 20061208
  Transmission Date: 20070319
  Serious: Yes (Hospitalization)
  Sender: FDA-Public Use
  Company Number: None

PATIENT
  Sex: Female
  Weight: 54.4 kg

DRUGS (13)
  1. CETUXIMAB, 250MG/M2 BRISTOL MEYERS SQUIBB [Suspect]
     Indication: CERVIX CARCINOMA
     Dosage: 405 MG WEEKLY IV
     Route: 042
     Dates: start: 20060914
  2. CETUXIMAB, 250MG/M2 BRISTOL MEYERS SQUIBB [Suspect]
     Indication: CERVIX CARCINOMA
     Dosage: 405 MG WEEKLY IV
     Route: 042
     Dates: start: 20060921
  3. CETUXIMAB, 250MG/M2 BRISTOL MEYERS SQUIBB [Suspect]
     Indication: CERVIX CARCINOMA
     Dosage: 390 MG WEEKLY IV
     Route: 042
     Dates: start: 20061003
  4. CETUXIMAB, 250MG/M2 BRISTOL MEYERS SQUIBB [Suspect]
     Indication: CERVIX CARCINOMA
     Dosage: 390 MG WEEKLY IV
     Route: 042
     Dates: start: 20061013
  5. CETUXIMAB, 250MG/M2 BRISTOL MEYERS SQUIBB [Suspect]
     Indication: CERVIX CARCINOMA
     Dosage: 390 MG WEEKLY IV
     Route: 042
     Dates: start: 20061019
  6. CETUXIMAB, 250MG/M2 BRISTOL MEYERS SQUIBB [Suspect]
     Indication: CERVIX CARCINOMA
     Dosage: 390 MG WEEKLY IV
     Route: 042
     Dates: start: 20061026
  7. LISINOPRIL AND HYDROCHLOROTHIAZIDE [Concomitant]
  8. OXYCODONE + ACETAMINOPHEN [Concomitant]
  9. FAMOTIDINE [Concomitant]
  10. POTASSIUM CHLORIDE [Concomitant]
  11. APREPITANT [Concomitant]
  12. DEXAMETHASONE [Concomitant]
  13. CIPROFLOXACIN [Concomitant]

REACTIONS (7)
  - ABDOMINAL PAIN UPPER [None]
  - ASTHENIA [None]
  - CULTURE URINE POSITIVE [None]
  - DIARRHOEA [None]
  - NAUSEA [None]
  - NEUTROPENIA [None]
  - STAPHYLOCOCCAL INFECTION [None]
